FAERS Safety Report 14657203 (Version 1)
Quarter: 2018Q1

REPORT INFORMATION
  Report Type: Spontaneous
  Country: DE (occurrence: DE)
  Receive Date: 20180319
  Receipt Date: 20180319
  Transmission Date: 20180509
  Serious: Yes (Other)
  Sender: FDA-Public Use
  Company Number: DE-PFIZER INC-2018108967

PATIENT
  Age: 29 Year
  Sex: Male

DRUGS (2)
  1. VENLAFAXINE HCL [Suspect]
     Active Substance: VENLAFAXINE HYDROCHLORIDE
     Dosage: 1500 MG (10 TABLETS OF 150 MG RETARD)
     Route: 048
     Dates: start: 20090327, end: 20090327
  2. ABILIFY [Suspect]
     Active Substance: ARIPIPRAZOLE
     Dosage: 1 DF, UNK
     Route: 048
     Dates: start: 20090327, end: 20090327

REACTIONS (3)
  - Overdose [Unknown]
  - Suicidal ideation [Unknown]
  - Fatigue [Unknown]

NARRATIVE: CASE EVENT DATE: 20090327
